FAERS Safety Report 16298474 (Version 1)
Quarter: 2019Q2

REPORT INFORMATION
  Report Type: Spontaneous
  Country: PL (occurrence: PL)
  Receive Date: 20190510
  Receipt Date: 20190510
  Transmission Date: 20190711
  Serious: Yes (Life-Threatening, Other)
  Sender: FDA-Public Use
  Company Number: PL-ACCORD-126720

PATIENT
  Age: 81 Year
  Sex: Female

DRUGS (4)
  1. ONDANSETRON [Suspect]
     Active Substance: ONDANSETRON
     Indication: MALIGNANT RESPIRATORY TRACT NEOPLASM
     Dosage: DAILY DOSE OF 8MG
     Route: 042
     Dates: start: 20160804, end: 20160804
  2. CARBOPLATIN. [Suspect]
     Active Substance: CARBOPLATIN
     Indication: MALIGNANT RESPIRATORY TRACT NEOPLASM
     Dosage: DAILY DOSE OF 5 MILIGRAM PER SQUARE METRE
     Route: 042
     Dates: start: 20160804, end: 20160804
  3. NAVELBINE [Suspect]
     Active Substance: VINORELBINE TARTRATE
     Indication: MALIGNANT RESPIRATORY TRACT NEOPLASM
     Dosage: DAILY DOSE OF 30 MILIGRAM PER SQUARE METRE
     Route: 042
     Dates: start: 20160804, end: 20160804
  4. DEXAVEN [Suspect]
     Active Substance: DEXAMETHASONE
     Indication: MALIGNANT RESPIRATORY TRACT NEOPLASM
     Dosage: DAILY DOSE OF 8MG
     Route: 042
     Dates: start: 20160804, end: 20160804

REACTIONS (1)
  - Neutropenia [Unknown]

NARRATIVE: CASE EVENT DATE: 20160811
